FAERS Safety Report 8516917-2 (Version None)
Quarter: 2012Q3

REPORT INFORMATION
  Report Type: 
  Country: None (occurrence: None)
  Receive Date: 20120718
  Receipt Date: 20120713
  Transmission Date: 20120928
  Serious: Yes (Death, Disabling)
  Sender: FDA-Public Use
  Company Number: BR-ELI_LILLY_AND_COMPANY-BR201205007888

PATIENT
  Sex: Female
  Weight: 35 kg

DRUGS (1)
  1. FORTEO [Suspect]
     Indication: OSTEOPOROSIS
     Dosage: UNK, QD
     Route: 065

REACTIONS (6)
  - GAIT DISTURBANCE [None]
  - PAIN [None]
  - ASTHENIA [None]
  - FEEDING DISORDER [None]
  - CARDIAC DISORDER [None]
  - WEIGHT DECREASED [None]
